FAERS Safety Report 8449490-8 (Version None)
Quarter: 2012Q2

REPORT INFORMATION
  Report Type: 
  Country: None (occurrence: None)
  Receive Date: 20120619
  Receipt Date: 20120611
  Transmission Date: 20120825
  Serious: Yes (Life-Threatening, Hospitalization, Other)
  Sender: FDA-Public Use
  Company Number: JP-MERCK-1203USA01646

PATIENT
  Age: 89 Year
  Sex: Female
  Weight: 33 kg

DRUGS (10)
  1. GASTROM [Concomitant]
     Route: 048
     Dates: start: 20060101
  2. ALDACTONE [Concomitant]
     Route: 048
     Dates: start: 20111113
  3. ACTOS [Concomitant]
     Route: 048
     Dates: start: 20110519
  4. ASPARA K [Concomitant]
     Route: 048
     Dates: start: 20091126
  5. JANUVIA [Suspect]
     Route: 048
     Dates: start: 20111130, end: 20120106
  6. URSO 250 [Concomitant]
     Route: 048
     Dates: start: 20091002
  7. PREDNISOLONE [Concomitant]
     Route: 048
     Dates: start: 20060101
  8. AMARYL [Concomitant]
     Route: 048
     Dates: start: 20110606
  9. NOVOLIN R [Concomitant]
     Dosage: 4-6U
     Route: 058
  10. JANUVIA [Suspect]
     Route: 048
     Dates: start: 20111105, end: 20111129

REACTIONS (2)
  - ANAEMIA [None]
  - WRONG TECHNIQUE IN DRUG USAGE PROCESS [None]
